FAERS Safety Report 7942815-9 (Version None)
Quarter: 2011Q4

REPORT INFORMATION
  Report Type: 
  Country: None (occurrence: None)
  Receive Date: 20111128
  Receipt Date: 20111116
  Transmission Date: 20120403
  Serious: Yes (Other)
  Sender: FDA-Public Use
  Company Number: DE-CUBIST-2011S1000775

PATIENT
  Age: 51 Year
  Sex: Male
  Weight: 130 kg

DRUGS (2)
  1. CUBICIN [Suspect]
     Indication: SEPSIS
     Dates: start: 20110222, end: 20110228
  2. MEROPENEM [Concomitant]
     Indication: PRODUCT USED FOR UNKNOWN INDICATION

REACTIONS (2)
  - BLOOD CREATININE INCREASED [None]
  - HYPERSENSITIVITY [None]
